FAERS Safety Report 19874626 (Version 1)
Quarter: 2021Q3

REPORT INFORMATION
  Report Type: Report from Study
  Country: None (occurrence: US)
  Receive Date: 20210922
  Receipt Date: 20210922
  Transmission Date: 20211014
  Serious: Yes (Hospitalization, Other)
  Sender: FDA-Public Use
  Company Number: US-ABBVIE-21K-163-4085851-00

PATIENT
  Age: 43 Year
  Sex: Male
  Weight: 76.27 kg

DRUGS (7)
  1. CREON [Suspect]
     Active Substance: PANCRELIPASE AMYLASE\PANCRELIPASE LIPASE\PANCRELIPASE PROTEASE
     Indication: PANCREATITIS CHRONIC
     Dosage: 2 CAPSULES BEFORE EACH MEAL PER DAY
     Route: 048
     Dates: start: 2014
  2. PANTOPRAZOLE [Concomitant]
     Active Substance: PANTOPRAZOLE
     Indication: GASTROOESOPHAGEAL REFLUX DISEASE
  3. FLORASTOR [Concomitant]
     Active Substance: SACCHAROMYCES CEREVISIAE
     Indication: PROBIOTIC THERAPY
  4. ATORVASTATIN [Concomitant]
     Active Substance: ATORVASTATIN
     Indication: BLOOD CHOLESTEROL
  5. ESCITALOPRAM [Concomitant]
     Active Substance: ESCITALOPRAM OXALATE
     Indication: ANXIETY
  6. ESCITALOPRAM [Concomitant]
     Active Substance: ESCITALOPRAM OXALATE
     Indication: DEPRESSION
  7. ELIQUIS [Concomitant]
     Active Substance: APIXABAN
     Indication: ANTICOAGULANT THERAPY

REACTIONS (10)
  - Pancreatitis [Recovering/Resolving]
  - Cerebrovascular accident [Not Recovered/Not Resolved]
  - Pneumothorax [Recovering/Resolving]
  - Cerebrovascular accident [Recovered/Resolved]
  - Factor II mutation [Not Recovered/Not Resolved]
  - Cerebral haemorrhage [Recovering/Resolving]
  - Discomfort [Recovering/Resolving]
  - Hemiparesis [Not Recovered/Not Resolved]
  - Fall [Recovered/Resolved]
  - Splenic rupture [Recovering/Resolving]

NARRATIVE: CASE EVENT DATE: 202102
